FAERS Safety Report 4576934-4 (Version None)
Quarter: 2005Q1

REPORT INFORMATION
  Report Type: 
  Country: None (occurrence: None)
  Receive Date: 20050128
  Receipt Date: 20050128
  Transmission Date: 20050727
  Serious: Yes (Other)
  Sender: FDA-Public Use
  Company Number: None

PATIENT
  Sex: Female

DRUGS (3)
  1. GLYCOLAX [Suspect]
     Indication: CONSTIPATION
     Dosage: USE 1 CAPFUL ONCE/TWICE DAILY BY MOUTH
     Route: 048
     Dates: start: 20041115, end: 20050117
  2. FIBER TABS [Concomitant]
  3. DOCUSATE SODIUM [Concomitant]

REACTIONS (2)
  - DRUG INEFFECTIVE [None]
  - PHARMACEUTICAL PRODUCT COMPLAINT [None]
